FAERS Safety Report 6095144-5 (Version None)
Quarter: 2009Q1

REPORT INFORMATION
  Report Type: 
  Country: None (occurrence: None)
  Receive Date: 20090227
  Receipt Date: 20080121
  Transmission Date: 20090719
  Serious: No
  Sender: FDA-Public Use
  Company Number: A0706129A

PATIENT
  Sex: Female

DRUGS (2)
  1. LAMICTAL [Suspect]
     Indication: DRUG USE FOR UNKNOWN INDICATION
     Route: 048
     Dates: start: 20071110
  2. UNKNOWN [Concomitant]

REACTIONS (8)
  - CANDIDIASIS [None]
  - HEADACHE [None]
  - LYMPHADENOPATHY [None]
  - OROPHARYNGEAL PAIN [None]
  - PAIN [None]
  - TONGUE DISCOLOURATION [None]
  - TONGUE DISORDER [None]
  - TONGUE ULCERATION [None]
